FAERS Safety Report 19595944 (Version 2)
Quarter: 2021Q3

REPORT INFORMATION
  Report Type: Report from Study
  Country: US (occurrence: US)
  Receive Date: 20210722
  Receipt Date: 20210819
  Transmission Date: 20211014
  Serious: Yes (Other)
  Sender: FDA-Public Use
  Company Number: US-TAKEDA-US202027496

PATIENT
  Age: 65 Year
  Sex: Female

DRUGS (2)
  1. HUMAN NORMAL IMMUNOGLOBULIN; LIQUID [Suspect]
     Active Substance: HUMAN IMMUNOGLOBULIN G
     Dosage: 110 GRAM, MONTHLY
     Route: 042
  2. HUMAN NORMAL IMMUNOGLOBULIN; LIQUID [Suspect]
     Active Substance: HUMAN IMMUNOGLOBULIN G
     Indication: PRIMARY IMMUNODEFICIENCY SYNDROME
     Dosage: 100 GRAM, MONTHLY
     Route: 042

REACTIONS (15)
  - Fatigue [Not Recovered/Not Resolved]
  - Pain in extremity [Unknown]
  - COVID-19 immunisation [Unknown]
  - Headache [Not Recovered/Not Resolved]
  - Tendonitis [Unknown]
  - Initial insomnia [Not Recovered/Not Resolved]
  - Pancreatic carcinoma [Unknown]
  - Injection site pain [Unknown]
  - Inappropriate schedule of product administration [Unknown]
  - Chills [Not Recovered/Not Resolved]
  - Poor quality sleep [Unknown]
  - Quality of life decreased [Unknown]
  - Immunoglobulins decreased [Unknown]
  - Malaise [Unknown]
  - Chills [Not Recovered/Not Resolved]

NARRATIVE: CASE EVENT DATE: 20210205
